FAERS Safety Report 12556539 (Version 5)
Quarter: 2016Q4

REPORT INFORMATION
  Report Type: Report from Study
  Country: BR (occurrence: BR)
  Receive Date: 20160714
  Receipt Date: 20161027
  Transmission Date: 20170207
  Serious: Yes (Hospitalization, Other)
  Sender: FDA-Public Use
  Company Number: PHHY2016BR096255

PATIENT
  Age: 61 Year
  Sex: Female
  Weight: 65 kg

DRUGS (2)
  1. EXJADE [Suspect]
     Active Substance: DEFERASIROX
     Indication: MYELODYSPLASTIC SYNDROME
     Dosage: 20 MG/KG (3 DF OF 500 MG), QD
     Route: 048
  2. DACOGEN [Concomitant]
     Active Substance: DECITABINE
     Indication: PRODUCT USED FOR UNKNOWN INDICATION
     Route: 065

REACTIONS (15)
  - Weight decreased [Recovering/Resolving]
  - Viral infection [Unknown]
  - Malaise [Unknown]
  - Osteoarthritis [Unknown]
  - Abasia [Unknown]
  - Gastrointestinal motility disorder [Recovered/Resolved]
  - Cough [Unknown]
  - Decreased appetite [Unknown]
  - Pyrexia [Unknown]
  - Decreased immune responsiveness [Unknown]
  - Blood iron increased [Unknown]
  - Hepatic infection [Recovered/Resolved]
  - Urinary tract infection [Recovered/Resolved]
  - Fungal skin infection [Unknown]
  - Asthenia [Unknown]

NARRATIVE: CASE EVENT DATE: 201509
